FAERS Safety Report 9220196 (Version 1)
Quarter: 2013Q2

REPORT INFORMATION
  Report Type: Spontaneous
  Country: BR (occurrence: BR)
  Receive Date: 20130409
  Receipt Date: 20130409
  Transmission Date: 20140414
  Serious: Yes (Other)
  Sender: FDA-Public Use
  Company Number: BR-PFIZER INC-2013108207

PATIENT
  Age: 94 Year
  Sex: Male

DRUGS (2)
  1. CARDURAN XL [Suspect]
     Indication: PROPHYLAXIS
     Dosage: 4 MG, DAILY
     Route: 048
     Dates: start: 19990408
  2. LYRICA [Suspect]
     Indication: ARTHRALGIA
     Dosage: UNK
     Dates: start: 2010, end: 2012

REACTIONS (5)
  - Joint injury [Unknown]
  - Weight decreased [Unknown]
  - Overweight [Recovered/Resolved]
  - Drug ineffective [Unknown]
  - Arthralgia [Unknown]
